FAERS Safety Report 9342035 (Version 2)
Quarter: 2013Q2

REPORT INFORMATION
  Report Type: Spontaneous
  Country: AU (occurrence: None)
  Receive Date: 20130606
  Receipt Date: 20130606
  Transmission Date: 20140414
  Serious: Yes (Life-Threatening)
  Sender: FDA-Public Use
  Company Number: 2013AP005654

PATIENT
  Age: 29 Year
  Sex: Female

DRUGS (6)
  1. CITALOPRAM HYDROBROMIDE [Suspect]
  2. QUETIAPINE (QUETIAPINE) (QUETIAPINE) [Suspect]
  3. CLEXANE (ENOXAPARIN SODIUM) [Suspect]
     Dates: start: 20130208, end: 20130212
  4. ALEPAM (OXAZEPAM) [Concomitant]
  5. MAXOLON (METOCLOPRAMIDE HYDROCHLORIDE) [Concomitant]
  6. ONDANSETRON HYDROCHLORIDE (ONDANSETRON HYDROCHLORIDE) [Concomitant]

REACTIONS (4)
  - Hyperemesis gravidarum [None]
  - Wound haemorrhage [None]
  - Suture related complication [None]
  - Exposure during pregnancy [None]
